FAERS Safety Report 23931178 (Version 2)
Quarter: 2024Q3

REPORT INFORMATION
  Report Type: Spontaneous
  Country: JP (occurrence: JP)
  Receive Date: 20240603
  Receipt Date: 20240708
  Transmission Date: 20241016
  Serious: Yes (Other)
  Sender: AMGEN
  Company Number: JP-KYOWAKIRIN-2024KK012544

PATIENT
  Age: 18 Year
  Sex: Male

DRUGS (2)
  1. FILGRASTIM [Suspect]
     Active Substance: FILGRASTIM
     Indication: Peripheral blood stem cell apheresis
     Dosage: 150 UG/DAY
     Route: 058
  2. FILGRASTIM [Suspect]
     Active Substance: FILGRASTIM
     Dosage: 75 UG/DAY
     Route: 058

REACTIONS (2)
  - Leukostasis syndrome [Unknown]
  - Renal disorder [Recovered/Resolved]
